FAERS Safety Report 9227288 (Version 1)
Quarter: 2013Q2

REPORT INFORMATION
  Report Type: Spontaneous
  Country: AU (occurrence: AU)
  Receive Date: 20130412
  Receipt Date: 20130412
  Transmission Date: 20140414
  Serious: Yes (Hospitalization, Other)
  Sender: FDA-Public Use
  Company Number: PHHY2013AU033764

PATIENT
  Age: 72 Year
  Sex: Female

DRUGS (1)
  1. ACLASTA [Suspect]
     Dosage: 5 MG PER 100ML
     Route: 042
     Dates: start: 20120329

REACTIONS (4)
  - Abasia [Unknown]
  - Osteomyelitis [Unknown]
  - Back pain [Unknown]
  - Pain [Unknown]
